FAERS Safety Report 19235462 (Version 1)
Quarter: 2021Q2

REPORT INFORMATION
  Report Type: Spontaneous
  Country: CA (occurrence: CA)
  Receive Date: 20210510
  Receipt Date: 20210510
  Transmission Date: 20210717
  Serious: Yes (Other)
  Sender: FDA-Public Use
  Company Number: CA-JNJFOC-20210456227

PATIENT
  Sex: Male

DRUGS (2)
  1. TYLENOL [Suspect]
     Active Substance: ACETAMINOPHEN
     Indication: PYREXIA
     Route: 065
  2. TYLENOL [Suspect]
     Active Substance: ACETAMINOPHEN
     Indication: PAIN

REACTIONS (39)
  - Rhinitis allergic [Unknown]
  - Aggression [Unknown]
  - Influenza like illness [Unknown]
  - Dysbiosis [Unknown]
  - Nervous system disorder [Unknown]
  - Rash [Unknown]
  - Headache [Unknown]
  - Croup infectious [Unknown]
  - Eczema [Unknown]
  - Memory impairment [Unknown]
  - Hypoglycaemia [Unknown]
  - Anaemia [Unknown]
  - Maternal exposure during breast feeding [Unknown]
  - Immune system disorder [Unknown]
  - Asthma [Unknown]
  - Hypotonia [Unknown]
  - Multiple chemical sensitivity [Unknown]
  - Anaphylactic reaction [Unknown]
  - Cyclic vomiting syndrome [Unknown]
  - Negativism [Unknown]
  - Aphthous ulcer [Unknown]
  - Anxiety [Unknown]
  - Diarrhoea [Unknown]
  - Sleep disorder [Unknown]
  - Depression [Unknown]
  - Attention deficit hyperactivity disorder [Unknown]
  - Food allergy [Unknown]
  - Irritability [Unknown]
  - Gastrooesophageal reflux disease [Unknown]
  - Anger [Unknown]
  - Lethargy [Unknown]
  - Obsessive-compulsive disorder [Unknown]
  - Defiant behaviour [Unknown]
  - Sensory integrative dysfunction [Unknown]
  - Pyrexia [Unknown]
  - Pain [Unknown]
  - Aphasia [Unknown]
  - Lymphadenopathy [Unknown]
  - Inflammation [Unknown]
